FAERS Safety Report 5864118-9 (Version None)
Quarter: 2008Q3

REPORT INFORMATION
  Report Type: 
  Country: None (occurrence: None)
  Receive Date: 20080829
  Receipt Date: 20080820
  Transmission Date: 20090109
  Serious: Yes (Death, Hospitalization)
  Sender: FDA-Public Use
  Company Number: FR-WYE-H05740008

PATIENT
  Sex: Male

DRUGS (8)
  1. CORDARONE [Suspect]
     Indication: CARDIOMYOPATHY
     Route: 048
  2. LEVOTHYROX [Suspect]
     Indication: THYROID DISORDER
     Route: 048
  3. FONDAPARINUX SODIUM [Concomitant]
  4. BISOPROLOL FUMARATE [Suspect]
     Indication: CARDIOMYOPATHY
     Route: 048
  5. XANAX [Suspect]
     Indication: ANXIETY
     Route: 048
  6. INSULIN [Suspect]
     Indication: TYPE 2 DIABETES MELLITUS
     Dosage: DOSE AND FREQUENCY NOT SPECIFIED
     Route: 065
     Dates: start: 20080325, end: 20080328
  7. LASIX [Suspect]
     Route: 048
  8. HEPARIN [Suspect]
     Indication: DEEP VEIN THROMBOSIS
     Dosage: DOSE AND FREQUENCY NOT SPECIFIED
     Route: 042
     Dates: start: 20080325, end: 20080328

REACTIONS (4)
  - CONCOMITANT DISEASE PROGRESSION [None]
  - PANCREATIC CARCINOMA METASTATIC [None]
  - PRURITUS [None]
  - URTICARIA [None]
